FAERS Safety Report 13902225 (Version 1)
Quarter: 2017Q3

REPORT INFORMATION
  Report Type: Spontaneous
  Country: US (occurrence: US)
  Receive Date: 20170824
  Receipt Date: 20170824
  Transmission Date: 20171127
  Serious: No
  Sender: FDA-Public Use
  Company Number: US-ROCHE-1122526

PATIENT
  Age: 55 Year
  Sex: Female

DRUGS (6)
  1. LAPATINIB [Suspect]
     Active Substance: LAPATINIB
     Indication: PRODUCT USED FOR UNKNOWN INDICATION
  2. GEMCITABINE [Suspect]
     Active Substance: GEMCITABINE\GEMCITABINE HYDROCHLORIDE
     Indication: PRODUCT USED FOR UNKNOWN INDICATION
  3. XELODA [Suspect]
     Active Substance: CAPECITABINE
     Indication: PRODUCT USED FOR UNKNOWN INDICATION
     Route: 065
  4. HERCEPTIN [Suspect]
     Active Substance: TRASTUZUMAB
     Indication: BREAST CANCER METASTATIC
     Route: 065
  5. TAXOL [Suspect]
     Active Substance: PACLITAXEL
     Indication: BREAST CANCER METASTATIC
  6. ABRAXANE [Suspect]
     Active Substance: PACLITAXEL
     Indication: BREAST CANCER METASTATIC

REACTIONS (2)
  - Aspartate aminotransferase increased [Unknown]
  - Alanine aminotransferase increased [Unknown]
